FAERS Safety Report 6963977-6 (Version None)
Quarter: 2010Q3

REPORT INFORMATION
  Report Type: 
  Country: None (occurrence: None)
  Receive Date: 20100902
  Receipt Date: 20100902
  Transmission Date: 20110219
  Serious: Yes (Other)
  Sender: FDA-Public Use
  Company Number: None

PATIENT
  Age: 39 Year
  Sex: Male
  Weight: 79.3795 kg

DRUGS (1)
  1. BENADRYL [Suspect]
     Indication: HYPERSENSITIVITY
     Dosage: 1 DAILY BUCCAL
     Route: 002
     Dates: start: 20100701, end: 20100720

REACTIONS (2)
  - ABDOMINAL PAIN LOWER [None]
  - PRODUCT QUALITY ISSUE [None]
